FAERS Safety Report 6532605-6 (Version None)
Quarter: 2010Q1

REPORT INFORMATION
  Report Type: 
  Country: None (occurrence: None)
  Receive Date: 20100111
  Receipt Date: 20100105
  Transmission Date: 20100710
  Serious: Yes (Death)
  Sender: FDA-Public Use
  Company Number: JP-ROCHE-678417

PATIENT
  Age: 68 Year
  Sex: Male

DRUGS (2)
  1. TAMIFLU [Suspect]
     Indication: INFLUENZA
     Route: 048
     Dates: start: 20091224
  2. ADRENAL CORTICAL EXTRACT [Concomitant]
     Dosage: ADRENAL HORMONE PREPARATIONS

REACTIONS (1)
  - PNEUMONIA [None]
